FAERS Safety Report 4715860-4 (Version None)
Quarter: 2005Q3

REPORT INFORMATION
  Report Type: 
  Country: None (occurrence: None)
  Receive Date: 20050718
  Receipt Date: 20050328
  Transmission Date: 20060218
  Serious: Yes (Death)
  Sender: FDA-Public Use
  Company Number: US-ROCHE-400040

PATIENT
  Age: 44 Year
  Sex: Female

DRUGS (1)
  1. FUZEON [Suspect]
     Indication: DRUG USE FOR UNKNOWN INDICATION
     Dosage: ROUTE REPORTED AS INJ.
     Route: 050

REACTIONS (1)
  - SPINDLE CELL SARCOMA [None]
